FAERS Safety Report 5947178-6 (Version None)
Quarter: 2008Q4

REPORT INFORMATION
  Report Type: 
  Country: None (occurrence: None)
  Receive Date: 20081110
  Receipt Date: 20081107
  Transmission Date: 20090506
  Serious: Yes (Death, Life-Threatening, Hospitalization)
  Sender: FDA-Public Use
  Company Number: US-GENENTECH-270200

PATIENT
  Age: 73 Year
  Sex: Female
  Weight: 56 kg

DRUGS (10)
  1. RAPTIVA [Suspect]
     Indication: PSORIASIS
     Dosage: 50 MG, 1/WEEK
     Route: 058
     Dates: start: 20050110
  2. ASPIRIN [Concomitant]
     Indication: DRUG USE FOR UNKNOWN INDICATION
  3. LEXAPRO [Concomitant]
     Indication: DEPRESSION
     Dosage: 10 MG, QD
  4. COLACE [Concomitant]
     Indication: DRUG USE FOR UNKNOWN INDICATION
  5. RESTORIL [Concomitant]
     Indication: DRUG USE FOR UNKNOWN INDICATION
  6. ZOCOR [Concomitant]
     Indication: HYPERLIPIDAEMIA
  7. CIPRO [Concomitant]
     Indication: URINARY TRACT INFECTION
     Dosage: 200 MG, Q12H
     Route: 042
  8. TOPICAL MEDICATION [Concomitant]
     Indication: DRUG USE FOR UNKNOWN INDICATION
     Dosage: UNK
     Dates: start: 20051201
  9. PREMARIN [Concomitant]
     Indication: DRUG USE FOR UNKNOWN INDICATION
  10. CALCIUM SUPPLEMENT [Concomitant]
     Indication: DRUG USE FOR UNKNOWN INDICATION

REACTIONS (1)
  - PROGRESSIVE MULTIFOCAL LEUKOENCEPHALOPATHY [None]
